FAERS Safety Report 7732236-6 (Version None)
Quarter: 2011Q3

REPORT INFORMATION
  Report Type: 
  Country: None (occurrence: None)
  Receive Date: 20110906
  Receipt Date: 20110825
  Transmission Date: 20111222
  Serious: Yes (Other)
  Sender: FDA-Public Use
  Company Number: GB-ELI_LILLY_AND_COMPANY-GB201108007948

PATIENT
  Sex: Male

DRUGS (2)
  1. BYETTA [Suspect]
     Dosage: UNK UNK, UNKNOWN
     Dates: start: 20110101
  2. BYETTA [Suspect]
     Dosage: UNK, UNKNOWN
     Dates: start: 20080101, end: 20100201

REACTIONS (1)
  - NEOPLASM MALIGNANT [None]
